FAERS Safety Report 4275828-1 (Version None)
Quarter: 2004Q1

REPORT INFORMATION
  Report Type: 
  Country: None (occurrence: None)
  Receive Date: 20040121
  Receipt Date: 20021025
  Transmission Date: 20041129
  Serious: No
  Sender: FDA-Public Use
  Company Number: US-GLAXOSMITHKLINE-A0384234A

PATIENT
  Age: 58 Year
  Sex: Female
  Weight: 63.2 kg

DRUGS (1)
  1. VALTREX [Suspect]
     Dosage: 500MG PER DAY
     Route: 048
     Dates: start: 20020601

REACTIONS (2)
  - DRUG INEFFECTIVE [None]
  - HERPES VIRUS INFECTION [None]
